FAERS Safety Report 9096266 (Version 2)
Quarter: 2014Q1

REPORT INFORMATION
  Report Type: Spontaneous
  Country: US (occurrence: US)
  Receive Date: 20130207
  Receipt Date: 20140206
  Transmission Date: 20141002
  Serious: Yes (Hospitalization, Other)
  Sender: FDA-Public Use
  Company Number: US-SANOFI-AVENTIS-2013SA010043

PATIENT
  Age: 66 Year
  Sex: Male
  Weight: 95 kg

DRUGS (10)
  1. PLAVIX [Suspect]
     Indication: STENT PLACEMENT
     Route: 065
     Dates: start: 20070213
  2. PLAVIX [Suspect]
     Indication: CARDIAC FAILURE CONGESTIVE
     Route: 065
     Dates: start: 20070213
  3. VASOTEC [Concomitant]
  4. COREG [Concomitant]
  5. LANOXIN [Concomitant]
  6. SYNTHROID [Concomitant]
  7. ZOCOR [Concomitant]
  8. ASPIRIN [Concomitant]
  9. LANTUS [Concomitant]
  10. NOVOLOG [Concomitant]

REACTIONS (4)
  - Atrial fibrillation [Recovered/Resolved]
  - Gangrene [Unknown]
  - Peripheral arterial occlusive disease [Unknown]
  - Therapeutic response unexpected [Unknown]
